FAERS Safety Report 12653246 (Version 3)
Quarter: 2017Q2

REPORT INFORMATION
  Report Type: Report from Study
  Country: PL (occurrence: PL)
  Receive Date: 20160815
  Receipt Date: 20170421
  Transmission Date: 20170830
  Serious: Yes (Hospitalization)
  Sender: FDA-Public Use
  Company Number: PL-TAKEDA-2016TUS014013

PATIENT
  Age: 30 Year
  Sex: Female
  Weight: 72 kg

DRUGS (6)
  1. IRON FERRIC PYROPHOSPHATE [Concomitant]
     Indication: MINERAL SUPPLEMENTATION
     Dosage: 7 MG
     Dates: start: 201510
  2. MESALAZINUM [Concomitant]
     Active Substance: MESALAMINE
     Indication: COLITIS ULCERATIVE
     Dosage: 4 G, QD
     Route: 048
     Dates: start: 201511
  3. GESTODENUM [Concomitant]
     Indication: CONTRACEPTION
     Dosage: 75 ?G, QD
     Route: 048
     Dates: start: 20160215
  4. MESALAZINUM [Concomitant]
     Active Substance: MESALAMINE
     Dosage: 1 G, UNK
     Route: 054
     Dates: start: 20160709, end: 20160819
  5. VEDOLIZUMAB [Suspect]
     Active Substance: VEDOLIZUMAB
     Indication: COLITIS ULCERATIVE
     Dosage: 300 MG, UNK
     Route: 065
     Dates: start: 20160317
  6. ETHINYLESTRADIOLUM [Concomitant]
     Indication: CONTRACEPTION
     Dosage: 20 ?G, QD
     Route: 048
     Dates: start: 20160215

REACTIONS (1)
  - Abdominal pain [Recovered/Resolved]

NARRATIVE: CASE EVENT DATE: 20160729
